FAERS Safety Report 4862258-4 (Version None)
Quarter: 2005Q4

REPORT INFORMATION
  Report Type: 
  Country: None (occurrence: None)
  Receive Date: 20051221
  Receipt Date: 20050926
  Transmission Date: 20060501
  Serious: Yes (Hospitalization, Disabling, Other)
  Sender: FDA-Public Use
  Company Number: US-AVENTIS-200516858US

PATIENT
  Sex: Female

DRUGS (12)
  1. TAXOTERE [Suspect]
     Route: 042
     Dates: start: 20041001, end: 20050630
  2. TAXOTERE [Suspect]
  3. LASIX [Suspect]
     Indication: OEDEMA
     Route: 048
     Dates: start: 20051123, end: 20051129
  4. LASIX [Suspect]
     Route: 048
     Dates: start: 20050901, end: 20051122
  5. LASIX [Suspect]
     Indication: CARDIAC FAILURE CONGESTIVE
     Route: 048
     Dates: start: 20051123, end: 20051129
  6. LASIX [Suspect]
     Route: 048
     Dates: start: 20050901, end: 20051122
  7. METAZOLONE [Suspect]
     Indication: CARDIAC FAILURE CONGESTIVE
     Dates: start: 20051123
  8. ATENOLOL [Concomitant]
     Indication: HYPERTENSION
     Route: 048
  9. LISINOPRIL [Concomitant]
     Route: 048
  10. LIPITOR [Concomitant]
     Route: 048
  11. ASPIRIN [Concomitant]
     Route: 048
  12. COLCHICINE [Concomitant]
     Route: 048

REACTIONS (11)
  - BLOOD PRESSURE INCREASED [None]
  - CARDIAC FAILURE CONGESTIVE [None]
  - CARDIAC OUTPUT DECREASED [None]
  - CORONARY ARTERY DISEASE [None]
  - HYPOTENSION [None]
  - ISCHAEMIC CARDIOMYOPATHY [None]
  - MYOCARDIAL INFARCTION [None]
  - OEDEMA [None]
  - PLEURAL EFFUSION [None]
  - PULMONARY HYPERTENSION [None]
  - RENAL FAILURE ACUTE [None]
